FAERS Safety Report 19670486 (Version 7)
Quarter: 2022Q2

REPORT INFORMATION
  Report Type: Report from Study
  Country: US (occurrence: US)
  Receive Date: 20210806
  Receipt Date: 20220427
  Transmission Date: 20220721
  Serious: Yes (Other)
  Sender: FDA-Public Use
  Company Number: NVSC2021US175067

PATIENT
  Age: 61 Year
  Sex: Female

DRUGS (2)
  1. ENTRESTO [Suspect]
     Active Substance: SACUBITRIL\VALSARTAN
     Indication: Cardiac failure chronic
     Dosage: 1 DOSAGE FORM, BID (24/26 MG)
     Route: 048
     Dates: start: 202104
  2. ENTRESTO [Suspect]
     Active Substance: SACUBITRIL\VALSARTAN
     Dosage: UNK
     Route: 065

REACTIONS (17)
  - Coronary vascular graft occlusion [Unknown]
  - Weight bearing difficulty [Unknown]
  - Lymphoedema [Unknown]
  - Blood pressure systolic increased [Unknown]
  - Hypoaesthesia [Unknown]
  - Visual impairment [Unknown]
  - Paraesthesia [Unknown]
  - Anxiety [Unknown]
  - Gait inability [Unknown]
  - Thinking abnormal [Unknown]
  - Amnesia [Unknown]
  - Malaise [Unknown]
  - Anaemia [Unknown]
  - Sensory loss [Unknown]
  - Poor quality sleep [Unknown]
  - Headache [Unknown]
  - Hypotension [Unknown]

NARRATIVE: CASE EVENT DATE: 20210501
